FAERS Safety Report 16172177 (Version 2)
Quarter: 2022Q2

REPORT INFORMATION
  Report Type: Other
  Country: US (occurrence: None)
  Receive Date: 20190409
  Receipt Date: 20220408
  Transmission Date: 20220721
  Serious: Yes (Other)
  Sender: FDA-Public Use
  Company Number: US-ROCHE-2295895

PATIENT
  Age: 60 Year
  Sex: Female
  Weight: 72.640 kg

DRUGS (14)
  1. OCREVUS [Suspect]
     Active Substance: OCRELIZUMAB
     Indication: Primary progressive multiple sclerosis
     Route: 065
     Dates: start: 201712, end: 201801
  2. ZANAFLEX [Concomitant]
     Active Substance: TIZANIDINE HYDROCHLORIDE
     Indication: Muscle spasticity
     Dosage: 3 TIMES A DAY ;ONGOING: YES
  3. DETROL [Concomitant]
     Active Substance: TOLTERODINE TARTRATE
     Dosage: ONCE A DAY ;ONGOING: YES
  4. LISINOPRIL [Concomitant]
     Active Substance: LISINOPRIL
     Indication: Blood pressure measurement
     Dosage: ONCE A DAY ;ONGOING: YES
     Dates: start: 2004
  5. CLINDAMYCIN [Concomitant]
     Active Substance: CLINDAMYCIN
     Indication: Urinary tract infection
     Dosage: NO
     Dates: start: 201801
  6. CLINDAMYCIN [Concomitant]
     Active Substance: CLINDAMYCIN
     Dosage: NO
  7. CLINDAMYCIN [Concomitant]
     Active Substance: CLINDAMYCIN
     Dosage: NO
  8. ALPRAZOLAM [Concomitant]
     Active Substance: ALPRAZOLAM
  9. ASPIRIN [Concomitant]
     Active Substance: ASPIRIN
  10. BACLOFEN [Concomitant]
     Active Substance: BACLOFEN
  11. BIOTIN [Concomitant]
     Active Substance: BIOTIN
  12. TECFIDERA [Concomitant]
     Active Substance: DIMETHYL FUMARATE
  13. VITAMIN C [Concomitant]
     Active Substance: ASCORBIC ACID
  14. TIZANIDINE [Concomitant]
     Active Substance: TIZANIDINE

REACTIONS (3)
  - Multiple sclerosis relapse [Recovered/Resolved]
  - Urinary tract infection [Recovered/Resolved]
  - Arthralgia [Recovered/Resolved]

NARRATIVE: CASE EVENT DATE: 20180101
